FAERS Safety Report 6249035-7 (Version None)
Quarter: 2009Q2

REPORT INFORMATION
  Report Type: 
  Country: None (occurrence: None)
  Receive Date: 20090624
  Receipt Date: 20090624
  Transmission Date: 20091009
  Serious: Yes (Hospitalization, Other)
  Sender: FDA-Public Use
  Company Number: None

PATIENT
  Sex: Male
  Weight: 65.7716 kg

DRUGS (1)
  1. ANABOLIC XTREME SUPERDROL 10 MG ANABOLIC RESOURCES LLC [Suspect]
     Indication: MUSCLE MASS
     Dosage: 10 MG ONCE A DAY PO
     Route: 048

REACTIONS (5)
  - CHROMATURIA [None]
  - HEPATIC FUNCTION ABNORMAL [None]
  - JAUNDICE [None]
  - OCULAR ICTERUS [None]
  - PRURITUS [None]
